FAERS Safety Report 4342942-1 (Version None)
Quarter: 2004Q2

REPORT INFORMATION
  Report Type: 
  Country: None (occurrence: None)
  Receive Date: 20040416
  Receipt Date: 20040405
  Transmission Date: 20050107
  Serious: Yes (Hospitalization)
  Sender: FDA-Public Use
  Company Number: 2004201748GB

PATIENT
  Age: 86 Year
  Sex: Female
  Weight: 49.7 kg

DRUGS (7)
  1. DOXORUBICIN HCL [Suspect]
     Indication: B-CELL LYMPHOMA
     Dosage: 5CYCLES
  2. CYCLOPHOSPHAMIDE [Concomitant]
  3. RITUXIMAB (RITUXAMB) [Concomitant]
  4. VINCRISTINE (VINCRISTIEN) [Concomitant]
  5. PREDNISONE [Concomitant]
  6. METYLDOPA (METHYLDOPA) [Concomitant]
  7. ALLOPURINOL TAB [Concomitant]

REACTIONS (5)
  - ACUTE CORONARY SYNDROME [None]
  - ATRIAL FIBRILLATION [None]
  - CIRCULATORY COLLAPSE [None]
  - DISTURBANCE IN ATTENTION [None]
  - MYOCARDIAL INFARCTION [None]
